FAERS Safety Report 12752793 (Version 2)
Quarter: 2016Q4

REPORT INFORMATION
  Report Type: Spontaneous
  Country: US (occurrence: US)
  Receive Date: 20160915
  Receipt Date: 20161019
  Transmission Date: 20170207
  Serious: Yes (Hospitalization, Other)
  Sender: FDA-Public Use
  Company Number: US-CELGENEUS-USA-2016092102

PATIENT
  Sex: Female
  Weight: 44.04 kg

DRUGS (1)
  1. REVLIMID [Suspect]
     Active Substance: LENALIDOMIDE
     Indication: PLASMA CELL MYELOMA
     Dosage: 15 MILLIGRAM
     Route: 048
     Dates: start: 201608

REACTIONS (8)
  - Fatigue [Unknown]
  - Bone pain [Unknown]
  - Dyspnoea [Unknown]
  - Weight decreased [Unknown]
  - Anaemia [Unknown]
  - Pain [Unknown]
  - Plasma cell myeloma [Unknown]
  - Decreased appetite [Unknown]

NARRATIVE: CASE EVENT DATE: 2016
